FAERS Safety Report 7875926-7 (Version None)
Quarter: 2011Q4

REPORT INFORMATION
  Report Type: 
  Country: None (occurrence: None)
  Receive Date: 20111031
  Receipt Date: 20111004
  Transmission Date: 20120403
  Serious: Yes (Hospitalization)
  Sender: FDA-Public Use
  Company Number: US-ROCHE-1007981

PATIENT

DRUGS (2)
  1. AVASTIN [Suspect]
     Indication: GLIOBLASTOMA
     Dosage: 10 MG/KG IV OVER 30-90 MIN ON DAY 1 OF WKS 4 AND 6
     Dates: start: 20101220, end: 20110705
  2. TEMOZOLOMIDE [Suspect]
     Indication: GLIOBLASTOMA
     Dosage: 75 MG/M2 PO QD
     Dates: start: 20101220, end: 20110705

REACTIONS (1)
  - ATAXIA [None]
